FAERS Safety Report 8365574-7 (Version None)
Quarter: 2012Q2

REPORT INFORMATION
  Report Type: 
  Country: None (occurrence: None)
  Receive Date: 20120516
  Receipt Date: 20120511
  Transmission Date: 20120825
  Serious: Yes (Other)
  Sender: FDA-Public Use
  Company Number: GB-ROCHE-1068176

PATIENT
  Age: 44 Year
  Sex: Female

DRUGS (7)
  1. RITUXIMAB [Suspect]
     Indication: B-CELL LYMPHOMA
  2. CYCLOPHOSPHAMIDE [Concomitant]
     Indication: B-CELL LYMPHOMA
  3. PREDNISONE TAB [Concomitant]
     Indication: B-CELL LYMPHOMA
  4. DOXORUBICIN HCL [Concomitant]
     Indication: B-CELL LYMPHOMA
  5. CLOZAPINE [Interacting]
     Route: 048
     Dates: start: 20070710, end: 20120401
  6. CLOZAPINE [Interacting]
     Indication: PRODUCT USED FOR UNKNOWN INDICATION
     Route: 048
     Dates: start: 20041020, end: 20070115
  7. VINCRISTINE [Concomitant]
     Indication: B-CELL LYMPHOMA

REACTIONS (5)
  - AGRANULOCYTOSIS [None]
  - NEUTROPENIA [None]
  - DRUG INTERACTION [None]
  - LEUKOPENIA [None]
  - B-CELL LYMPHOMA [None]
